FAERS Safety Report 21435759 (Version 2)
Quarter: 2024Q3

REPORT INFORMATION
  Report Type: Spontaneous
  Country: US (occurrence: US)
  Receive Date: 20221010
  Receipt Date: 20240821
  Transmission Date: 20241017
  Serious: No
  Sender: SANOFI AVENTIS
  Company Number: US-SA-SAC20221003000474

PATIENT
  Age: 11 Year
  Sex: Female
  Weight: 27.664 kg

DRUGS (5)
  1. DUPIXENT [Suspect]
     Active Substance: DUPILUMAB
     Indication: Dermatitis atopic
     Dosage: 200 MG, QOW
     Route: 058
     Dates: start: 20200814, end: 202203
  2. ZYRTEC [Concomitant]
     Active Substance: CETIRIZINE HYDROCHLORIDE
     Dosage: 10MG
  3. EPIPEN [Concomitant]
     Active Substance: EPINEPHRINE
     Dosage: 0.3MG/0.3 AUTO INJCT
  4. LEVALBUTEROL TARTRATE [Concomitant]
     Active Substance: LEVALBUTEROL TARTRATE
  5. ALVESCO [Concomitant]
     Active Substance: CICLESONIDE
     Dosage: 80 MCG HFA AER AD

REACTIONS (8)
  - Impetigo [Unknown]
  - Illness [Unknown]
  - Dry skin [Unknown]
  - Pruritus [Unknown]
  - Incorrect dose administered [Unknown]
  - Drug ineffective [Unknown]
  - Rash macular [Unknown]
  - Pain [Unknown]

NARRATIVE: CASE EVENT DATE: 20200814
